FAERS Safety Report 8844863 (Version 2)
Quarter: 2014Q2

REPORT INFORMATION
  Report Type: Spontaneous
  Country: CA (occurrence: CA)
  Receive Date: 20121017
  Receipt Date: 20140410
  Transmission Date: 20141212
  Serious: Yes (Disabling, Other)
  Sender: FDA-Public Use
  Company Number: CA-ELI_LILLY_AND_COMPANY-CA201210001938

PATIENT
  Sex: Female
  Weight: 82 kg

DRUGS (3)
  1. PROZAC [Suspect]
     Indication: BIPOLAR DISORDER
     Dosage: 20 MG, BID
     Route: 048
     Dates: start: 200803
  2. LITHIUM CARBONATE [Suspect]
     Indication: BIPOLAR DISORDER
     Dosage: 600 MG, QD
     Route: 048
  3. LITHIUM CARBONATE [Suspect]
     Dosage: 40 MG, QD
     Route: 048

REACTIONS (37)
  - Hepatic steatosis [Unknown]
  - Loss of consciousness [Not Recovered/Not Resolved]
  - Suicidal ideation [Unknown]
  - Abdominal pain upper [Not Recovered/Not Resolved]
  - Confusional state [Not Recovered/Not Resolved]
  - Constipation [Not Recovered/Not Resolved]
  - Coordination abnormal [Not Recovered/Not Resolved]
  - Visual impairment [Not Recovered/Not Resolved]
  - Vertigo [Not Recovered/Not Resolved]
  - Dysarthria [Not Recovered/Not Resolved]
  - Muscle tightness [Not Recovered/Not Resolved]
  - Muscular weakness [Not Recovered/Not Resolved]
  - Pain [Not Recovered/Not Resolved]
  - Thirst [Unknown]
  - Kidney enlargement [Unknown]
  - Apathy [Unknown]
  - Paranoia [Unknown]
  - Altered visual depth perception [Unknown]
  - Feeling abnormal [Unknown]
  - Nausea [Not Recovered/Not Resolved]
  - Dizziness [Not Recovered/Not Resolved]
  - Dry mouth [Not Recovered/Not Resolved]
  - Muscle twitching [Not Recovered/Not Resolved]
  - Fatigue [Not Recovered/Not Resolved]
  - Restlessness [Not Recovered/Not Resolved]
  - Tremor [Not Recovered/Not Resolved]
  - Vision blurred [Not Recovered/Not Resolved]
  - Pollakiuria [Unknown]
  - Anxiety [Unknown]
  - Headache [Unknown]
  - Diarrhoea [Unknown]
  - Somnolence [Unknown]
  - Insomnia [Unknown]
  - Decreased appetite [Unknown]
  - Hyperhidrosis [Unknown]
  - Libido decreased [Unknown]
  - Off label use [Unknown]
